FAERS Safety Report 7216015-4 (Version None)
Quarter: 2011Q1

REPORT INFORMATION
  Report Type: 
  Country: None (occurrence: None)
  Receive Date: 20110105
  Receipt Date: 20110105
  Transmission Date: 20110831
  Serious: Yes (Hospitalization)
  Sender: FDA-Public Use
  Company Number: None

PATIENT
  Sex: Female

DRUGS (1)
  1. KLOR-CON [Suspect]
     Indication: BLOOD POTASSIUM DECREASED
     Dosage: 2 TABS BID PO
     Route: 048
     Dates: start: 20101216

REACTIONS (5)
  - VOMITING [None]
  - NAUSEA [None]
  - OESOPHAGEAL PAIN [None]
  - DEHYDRATION [None]
  - DIARRHOEA [None]
